FAERS Safety Report 15544013 (Version 1)
Quarter: 2018Q4

REPORT INFORMATION
  Report Type: Spontaneous
  Country: FR (occurrence: FR)
  Receive Date: 20181023
  Receipt Date: 20181023
  Transmission Date: 20190205
  Serious: Yes (Other)
  Sender: FDA-Public Use
  Company Number: FR-LUNDBECK-DKLU2055924

PATIENT
  Sex: Female
  Weight: 54 kg

DRUGS (2)
  1. LAMICTAL [Concomitant]
     Active Substance: LAMOTRIGINE
     Indication: EPILEPSY
     Route: 065
     Dates: start: 20030502, end: 20030720
  2. URBANYL [Suspect]
     Active Substance: CLOBAZAM
     Indication: EPILEPSY
     Route: 048
     Dates: start: 20030502, end: 20030720

REACTIONS (2)
  - Myoclonus [Recovered/Resolved]
  - Somnolence [Recovered/Resolved]
